FAERS Safety Report 6600157-8 (Version None)
Quarter: 2010Q1

REPORT INFORMATION
  Report Type: 
  Country: None (occurrence: None)
  Receive Date: 20100224
  Receipt Date: 20100217
  Transmission Date: 20100710
  Serious: Yes (Other)
  Sender: FDA-Public Use
  Company Number: A0844984A

PATIENT
  Age: 80 Year
  Sex: Male

DRUGS (1)
  1. AVANDIA [Suspect]
     Indication: DIABETES MELLITUS
     Dosage: 8MG TWICE PER DAY
     Route: 048
     Dates: start: 20040816, end: 20061201

REACTIONS (4)
  - BLINDNESS [None]
  - OPTIC ATROPHY [None]
  - OPTIC ISCHAEMIC NEUROPATHY [None]
  - OPTIC NERVE CUPPING [None]
